FAERS Safety Report 20191349 (Version 1)
Quarter: 2021Q4

REPORT INFORMATION
  Report Type: Spontaneous
  Country: FR (occurrence: FR)
  Receive Date: 20211216
  Receipt Date: 20211216
  Transmission Date: 20220303
  Serious: Yes (Other)
  Sender: FDA-Public Use
  Company Number: FR-AFSSAPS-TO20215975

PATIENT
  Age: 73 Year
  Sex: Female
  Weight: 85 kg

DRUGS (8)
  1. CLOPIDOGREL [Suspect]
     Active Substance: CLOPIDOGREL BISULFATE
     Indication: Angioplasty
     Dosage: 75 MG IN THE MORNING
     Route: 048
     Dates: start: 202106
  2. BAYER ASPIRIN [Suspect]
     Active Substance: ASPIRIN
     Indication: Angioplasty
     Dosage: 75 MG IN THE MORNING
     Route: 048
     Dates: start: 202106
  3. LOVENOX [Suspect]
     Active Substance: ENOXAPARIN SODIUM
     Indication: Angioplasty
     Dosage: 1 INJECTION MORNING AND EVENING
     Route: 058
     Dates: start: 20210702, end: 20210803
  4. DOLIPRANE [Concomitant]
     Active Substance: ACETAMINOPHEN
     Indication: Product used for unknown indication
     Dosage: 3 CP / DAY
     Route: 048
  5. ISOPTINE 120 mg, gelule [Concomitant]
     Indication: Product used for unknown indication
     Dosage: 1 TABLET IN THE MORNING
     Route: 048
  6. PROTOXYDE D AZOTE MEDICINAL AIR LIQUIDE SANTE FRANCE, gaz pour inha... [Concomitant]
     Indication: Product used for unknown indication
     Dosage: AT THE TIME OF TREATMENT
     Route: 048
  7. RAMIPRIL ALMUS 1,25 mg, comprime [Concomitant]
     Indication: Product used for unknown indication
     Dosage: 1 CP IN THE MORNING
     Route: 048
  8. ATORVASTATINE ACCORD 40 mg, comprime pellicule [Concomitant]
     Indication: Product used for unknown indication
     Dosage: 1 TABLET IN THE EVENING
     Route: 042

REACTIONS (1)
  - Haemarthrosis [Recovering/Resolving]

NARRATIVE: CASE EVENT DATE: 20210727
